FAERS Safety Report 6231254-7 (Version None)
Quarter: 2009Q2

REPORT INFORMATION
  Report Type: 
  Country: None (occurrence: None)
  Receive Date: 20090616
  Receipt Date: 20090611
  Transmission Date: 20091009
  Serious: Yes (Hospitalization, Other)
  Sender: FDA-Public Use
  Company Number: US-ELI_LILLY_AND_COMPANY-US200906002692

PATIENT
  Sex: Female

DRUGS (17)
  1. EVISTA [Suspect]
     Indication: OSTEOPOROSIS
     Dosage: 60 MG, DAILY (1/D)
     Dates: end: 20080101
  2. FORTEO [Suspect]
     Indication: OSTEOPOROSIS
     Dosage: 20 UG, DAILY (1/D)
     Dates: start: 20090401, end: 20090501
  3. ALLEGRA D /01367401/ [Concomitant]
  4. SPIRIVA [Concomitant]
  5. DIOVAN /SCH/ [Concomitant]
  6. NEXIUM [Concomitant]
  7. LOPRESSOR [Concomitant]
  8. ASPIRIN [Concomitant]
  9. LIPITOR [Concomitant]
  10. ALBUTEROL [Concomitant]
  11. OXYGEN [Concomitant]
     Dosage: UNK, EACH EVENING
  12. TYLENOL                                 /SCH/ [Concomitant]
  13. CALCIUM W/VITAMIN D NOS [Concomitant]
  14. VITAMIN B COMPLEX CAP [Concomitant]
  15. VITAMIN E [Concomitant]
  16. MULTI-VITAMIN [Concomitant]
  17. IRON [Concomitant]

REACTIONS (9)
  - ARTHRALGIA [None]
  - CARDIAC DISORDER [None]
  - CHEST PAIN [None]
  - DRUG INEFFECTIVE [None]
  - HEART RATE INCREASED [None]
  - MYOCARDIAL INFARCTION [None]
  - NAUSEA [None]
  - OSTEOPOROSIS [None]
  - PAIN IN EXTREMITY [None]
